FAERS Safety Report 6695710-X (Version None)
Quarter: 2010Q2

REPORT INFORMATION
  Report Type: 
  Country: None (occurrence: None)
  Receive Date: 20100426
  Receipt Date: 20100412
  Transmission Date: 20101027
  Serious: Yes (Other)
  Sender: FDA-Public Use
  Company Number: US-ASTRAZENECA-2009UW15616

PATIENT
  Sex: Male

DRUGS (13)
  1. SEROQUEL [Suspect]
     Dosage: 75 TO 400 MG
     Route: 048
     Dates: start: 20021123
  2. TRILEPTAL [Concomitant]
     Dates: start: 20021205
  3. RITALIN [Concomitant]
     Dates: start: 20030102
  4. CYCLOBENZAPRINE [Concomitant]
     Indication: MUSCLE SPASMS
     Dates: start: 20030107
  5. HYDROCODONE BITARTRATE AND ACETAMINOPHEN [Concomitant]
     Dosage: 5 MG/ 500 MG TAKE 1-2 TS PO Q 4-6 HOURS PRN
     Dates: start: 20030117
  6. TEMAZEPAM [Concomitant]
     Dates: start: 20060905
  7. PROPRANOLOL [Concomitant]
     Dates: start: 20060905
  8. GEODON [Concomitant]
  9. CYMBALTA [Concomitant]
     Dates: start: 20080113
  10. DEPAKOTE [Concomitant]
     Dates: start: 20080113
  11. TRICOR [Concomitant]
     Dates: start: 20080113
  12. JANUVIA [Concomitant]
     Dates: start: 20080113
  13. TYLENOL-500 [Concomitant]
     Indication: PAIN
     Dates: start: 20080113

REACTIONS (6)
  - DIABETES MELLITUS [None]
  - DIABETES MELLITUS INADEQUATE CONTROL [None]
  - DIABETIC KETOACIDOSIS [None]
  - DIABETIC NEUROPATHY [None]
  - POLYNEUROPATHY [None]
  - TYPE 2 DIABETES MELLITUS [None]
